FAERS Safety Report 8235352 (Version 3)
Quarter: 2013Q4

REPORT INFORMATION
  Report Type: Spontaneous
  Country: US (occurrence: US)
  Receive Date: 20111108
  Receipt Date: 20131223
  Transmission Date: 20140711
  Serious: Yes (Hospitalization)
  Sender: FDA-Public Use
  Company Number: US-BAYER-2011-106938

PATIENT
  Age: 19 Year
  Sex: Female

DRUGS (6)
  1. YASMIN [Suspect]
     Dosage: UNK
     Dates: start: 2000, end: 2007
  2. YAZ [Suspect]
     Dosage: UNK
     Dates: start: 2000, end: 2007
  3. IMITREX [Concomitant]
     Indication: MIGRAINE
     Dosage: UNK
     Dates: start: 2001, end: 2003
  4. MORPHINE [Concomitant]
  5. PHENERGAN [Concomitant]
  6. ROCEPHIN [Concomitant]

REACTIONS (2)
  - Gastric disorder [None]
  - Cholecystitis chronic [None]
